FAERS Safety Report 16655299 (Version 9)
Quarter: 2021Q2

REPORT INFORMATION
  Report Type: Spontaneous
  Country: US (occurrence: US)
  Receive Date: 20190801
  Receipt Date: 20210603
  Transmission Date: 20210716
  Serious: Yes (Other)
  Sender: FDA-Public Use
  Company Number: US-PFIZER INC-2019322876

PATIENT
  Age: 64 Year
  Sex: Male

DRUGS (3)
  1. BENEFIX [Suspect]
     Active Substance: COAGULATION FACTOR IX RECOMBINANT HUMAN\ISOPROPYL ALCOHOL
     Dosage: DAY1 THRY DAY LO INFUSE 3850 UNITS (+/?10%) = 50 U/KG ONCE DAILY FOR TEN DAYS
  2. BENEFIX [Suspect]
     Active Substance: COAGULATION FACTOR IX RECOMBINANT HUMAN\ISOPROPYL ALCOHOL
     Indication: HAEMORRHAGE
     Dosage: 7700 UNITS (+/?10%) = 100 UNITS/KG DAILY X1
  3. BENEFIX [Suspect]
     Active Substance: COAGULATION FACTOR IX RECOMBINANT HUMAN\ISOPROPYL ALCOHOL
     Dosage: UNK, 1X/DAY (7900 UNITS (+/?10%) = 100 UNITS/KG DAILY X1)

REACTIONS (2)
  - Post procedural haemorrhage [Not Recovered/Not Resolved]
  - Haemorrhage [Unknown]
